FAERS Safety Report 7484983-1 (Version None)
Quarter: 2011Q2

REPORT INFORMATION
  Report Type: 
  Country: None (occurrence: None)
  Receive Date: 20110517
  Receipt Date: 20110511
  Transmission Date: 20111010
  Serious: Yes (Hospitalization)
  Sender: FDA-Public Use
  Company Number: US-B.I. PHARMACEUTICALS,INC./RIDGEFIELD-2011-BP-12801BP

PATIENT
  Age: 62 Year
  Sex: Female

DRUGS (10)
  1. ADVAIR DISKUS 100/50 [Concomitant]
     Indication: CHRONIC OBSTRUCTIVE PULMONARY DISEASE
     Dates: start: 20090101
  2. PACERONE [Concomitant]
     Indication: HYPERTENSION
     Dosage: 200 MG
  3. WARFARIN SODIUM [Concomitant]
     Indication: CARDIAC FAILURE CONGESTIVE
     Dosage: 5 MG
  4. PROTONIX [Concomitant]
     Indication: ULCER
     Dates: start: 20090101
  5. BENAZEPRIL HYDROCHLORIDE [Concomitant]
     Indication: HYPERTENSION
     Dosage: 40 MG
  6. SIMVASTATIN [Concomitant]
     Indication: BLOOD CHOLESTEROL INCREASED
     Dosage: 40 MG
  7. SPIRIVA [Suspect]
     Indication: CHRONIC OBSTRUCTIVE PULMONARY DISEASE
     Dosage: 18 MCG
     Route: 055
     Dates: start: 20100301
  8. SYNTHROID [Concomitant]
     Indication: HYPOTHYROIDISM
     Dates: start: 19700101
  9. CARVEDILOL [Concomitant]
     Indication: HYPERTENSION
     Dosage: 6.25 MG
  10. SPIRONOLACT [Concomitant]
     Indication: CARDIAC FAILURE CONGESTIVE
     Dosage: 25 MG

REACTIONS (2)
  - CORONARY ARTERY OCCLUSION [None]
  - CARDIAC FAILURE CONGESTIVE [None]
